FAERS Safety Report 4333823-8 (Version None)
Quarter: 2004Q2

REPORT INFORMATION
  Report Type: 
  Country: None (occurrence: None)
  Receive Date: 20040406
  Receipt Date: 20040406
  Transmission Date: 20050107
  Serious: Yes (Death)
  Sender: FDA-Public Use
  Company Number: None

PATIENT
  Age: 56 Year
  Sex: Female
  Weight: 97.977 kg

DRUGS (1)
  1. FASTIN [Suspect]
     Indication: OBESITY
     Dosage: 30 MG DAILY (047) ORALLY
     Route: 048

REACTIONS (13)
  - BLOOD PRESSURE IMMEASURABLE [None]
  - CARDIOVASCULAR DISORDER [None]
  - CHEST DISCOMFORT [None]
  - CYSTOCELE [None]
  - DEPRESSED LEVEL OF CONSCIOUSNESS [None]
  - ELECTROMECHANICAL DISSOCIATION [None]
  - ENDOMETRIOSIS [None]
  - POST PROCEDURAL COMPLICATION [None]
  - POSTMENOPAUSAL HAEMORRHAGE [None]
  - PULMONARY EMBOLISM [None]
  - RECTOCELE [None]
  - SENSATION OF PRESSURE [None]
  - SHOCK [None]
